FAERS Safety Report 5786269-X (Version None)
Quarter: 2008Q2

REPORT INFORMATION
  Report Type: 
  Country: None (occurrence: None)
  Receive Date: 20080624
  Receipt Date: 20070711
  Transmission Date: 20081010
  Serious: No
  Sender: FDA-Public Use
  Company Number: US-ASTRAZENECA-2007UW16251

PATIENT
  Age: 70 Year
  Sex: Female
  Weight: 63.5 kg

DRUGS (13)
  1. PULMICORT-100 [Suspect]
     Route: 055
  2. COREG [Concomitant]
  3. COZAAR [Concomitant]
  4. SYNTHROID [Concomitant]
  5. ZETIA [Concomitant]
  6. MECLIZINE [Concomitant]
  7. ASPIRIN [Concomitant]
  8. LIPITOR [Concomitant]
  9. PLAVIX [Concomitant]
  10. SINGULAIR [Concomitant]
  11. ESSIAN [Concomitant]
  12. FLUTICASONE PROPIONATE [Concomitant]
  13. ALBUTEROL [Concomitant]

REACTIONS (1)
  - DYSPNOEA [None]
